FAERS Safety Report 16794051 (Version 1)
Quarter: 2019Q3

REPORT INFORMATION
  Report Type: Report from Study
  Country: IT (occurrence: IT)
  Receive Date: 20190911
  Receipt Date: 20190911
  Transmission Date: 20191005
  Serious: Yes (Hospitalization)
  Sender: FDA-Public Use
  Company Number: IT-TEVA-2019-IT-1103955

PATIENT
  Age: 9 Year
  Sex: Male
  Weight: 133 kg

DRUGS (19)
  1. IFOSFAMIDE. [Suspect]
     Active Substance: IFOSFAMIDE
     Dosage: 936 MILLIGRAM, 1 CYCLICAL
     Route: 042
     Dates: start: 20181222, end: 20181222
  2. ANTRA [Concomitant]
     Active Substance: OMEPRAZOLE
     Dosage: 40 MILLIGRAM, 1 DAYS
     Route: 042
  3. MYELOSTIM [Concomitant]
     Active Substance: LENOGRASTIM
     Indication: NEUTROPENIA
     Dosage: 0.5 DOSAGE FORMS, 1 DAYS
     Route: 058
     Dates: start: 20181209, end: 20181215
  4. ONCASPAR [Suspect]
     Active Substance: PEGASPARGASE
     Indication: ACUTE LYMPHOCYTIC LEUKAEMIA
     Dosage: 2925 IU, 1 CYCLICAL
     Route: 042
     Dates: start: 20181204, end: 20181226
  5. MYCOSTATIN [Concomitant]
     Active Substance: NYSTATIN
     Dosage: 15 ML, 1 DAYS
     Route: 048
  6. IFOSFAMIDE. [Suspect]
     Active Substance: IFOSFAMIDE
     Indication: ACUTE LYMPHOCYTIC LEUKAEMIA
     Dosage: 1872 MILLIGRAM, 1 CYCLICAL
     Route: 042
     Dates: start: 20181223, end: 20181224
  7. URBASON [Concomitant]
     Active Substance: METHYLPREDNISOLONE
     Indication: PREMEDICATION
     Dosage: 10 MILLIGRAM, 1 CYCLICAL
     Route: 037
     Dates: start: 20181221, end: 20181221
  8. UROMITEXAN [Suspect]
     Active Substance: MESNA
     Indication: ACUTE LYMPHOCYTIC LEUKAEMIA
     Route: 042
     Dates: start: 20181222, end: 20181222
  9. UROMITEXAN [Suspect]
     Active Substance: MESNA
     Dosage: 2100 MILLIGRAM, 1 CYCLICAL
     Route: 042
     Dates: start: 20181223, end: 20181224
  10. LASIX [Concomitant]
     Active Substance: FUROSEMIDE
     Dosage: 40 MILLIGRAM, 1 DAYS
     Route: 042
     Dates: start: 20181221, end: 20181222
  11. LEDERFOLIN [Concomitant]
     Active Substance: LEUCOVORIN CALCIUM
     Dosage: 54 MILLIGRAM, 1 CYCLICAL
     Route: 042
     Dates: start: 20181223, end: 20181223
  12. BACTRIM [Concomitant]
     Active Substance: SULFAMETHOXAZOLE\TRIMETHOPRIM
     Dosage: 2 DOSAGE FORMS, 1 CYCLICAL
     Route: 048
  13. DILATREND [Concomitant]
     Active Substance: CARVEDILOL
     Dosage: 3.12 MILLIGRAM, 1 DAYS
     Route: 048
  14. ZOFRAN [Concomitant]
     Active Substance: ONDANSETRON HYDROCHLORIDE
     Dosage: 12 MILLIGRAM, 1 DAYS
     Route: 042
  15. METHOTREXATE. [Suspect]
     Active Substance: METHOTREXATE
     Indication: ACUTE LYMPHOCYTIC LEUKAEMIA
     Dosage: 5850 MILLIGRAM, 1 CYCLICAL
     Route: 042
     Dates: start: 20181115, end: 20181221
  16. VINDESINE SULFATE [Suspect]
     Active Substance: VINDESINE SULFATE
     Indication: ACUTE LYMPHOCYTIC LEUKAEMIA
     Dosage: 3.5 MILLIGRAM, 1 CYCLICAL
     Route: 042
     Dates: start: 20181221, end: 20181226
  17. DECADRON [Concomitant]
     Active Substance: DEXAMETHASONE
     Dosage: 23.4 MILLIGRAM, 1 DAYS
     Route: 042
     Dates: start: 20181221, end: 20181225
  18. METHOTREXATE. [Suspect]
     Active Substance: METHOTREXATE
     Dosage: 12 MILLIGRAM, 1 CYCLICAL
     Route: 037
     Dates: start: 20181221, end: 20181221
  19. CIPROXIN [Concomitant]
     Active Substance: CIPROFLOXACIN
     Dosage: 500 MILLIGRAM, 1 DAYS
     Dates: start: 20181210

REACTIONS (4)
  - Oropharyngeal pain [Recovered/Resolved]
  - Gait disturbance [Recovered/Resolved]
  - Pain in extremity [Recovered/Resolved]
  - Hypoalbuminaemia [Recovered/Resolved]

NARRATIVE: CASE EVENT DATE: 20181224
